FAERS Safety Report 16160459 (Version 1)
Quarter: 2019Q2

REPORT INFORMATION
  Report Type: Report from Study
  Country: CA (occurrence: CA)
  Receive Date: 20190405
  Receipt Date: 20190405
  Transmission Date: 20190711
  Serious: Yes (Hospitalization, Other)
  Sender: FDA-Public Use
  Company Number: CA-BRISTOL-MYERS SQUIBB COMPANY-BMS-2019-016266

PATIENT
  Age: 60 Year
  Sex: Male

DRUGS (2)
  1. NIVOLUMAB [Suspect]
     Active Substance: NIVOLUMAB
     Indication: RENAL CELL CARCINOMA
     Dosage: 190 MG, Q3WK
     Route: 042
     Dates: start: 20190122
  2. YERVOY [Suspect]
     Active Substance: IPILIMUMAB
     Indication: RENAL CELL CARCINOMA
     Dosage: 64 MG
     Route: 042
     Dates: start: 20190122

REACTIONS (19)
  - Dyspnoea [Unknown]
  - Anxiety [Unknown]
  - Headache [Unknown]
  - Depressed level of consciousness [Unknown]
  - Abnormal behaviour [Recovered/Resolved]
  - Dizziness [Unknown]
  - Hypercalcaemia [Unknown]
  - Somnolence [Unknown]
  - Joint swelling [Recovered/Resolved]
  - Cough [Unknown]
  - Asthenia [Unknown]
  - Abdominal pain upper [Unknown]
  - Fatigue [Unknown]
  - Gait disturbance [Unknown]
  - Vomiting [Recovered/Resolved]
  - Anaemia [Unknown]
  - Nausea [Recovered/Resolved]
  - Vision blurred [Recovered/Resolved]
  - Pyrexia [Recovered/Resolved]

NARRATIVE: CASE EVENT DATE: 201902
